FAERS Safety Report 10135951 (Version 2)
Quarter: 2014Q3

REPORT INFORMATION
  Report Type: Spontaneous
  Country: FR (occurrence: FR)
  Receive Date: 20140428
  Receipt Date: 20140804
  Transmission Date: 20150326
  Serious: Yes (Hospitalization)
  Sender: FDA-Public Use
  Company Number: FR-BRISTOL-MYERS SQUIBB COMPANY-20663753

PATIENT
  Age: 91 Year
  Sex: Female

DRUGS (6)
  1. COUMADINE [Suspect]
     Active Substance: WARFARIN SODIUM
     Route: 048
     Dates: start: 20140121
  2. BISOPROLOL [Concomitant]
     Active Substance: BISOPROLOL
     Dosage: 1.25MG ?1DF = 1 UNIT NOS
  3. PARACETAMOL [Concomitant]
     Active Substance: ACETAMINOPHEN
  4. DICLOFENAC [Concomitant]
     Active Substance: DICLOFENAC
     Dosage: GEL
  5. LOVENOX [Interacting]
     Active Substance: ENOXAPARIN SODIUM
     Route: 058
     Dates: start: 201402, end: 20140318
  6. ESOMEPRAZOLE [Concomitant]
     Active Substance: ESOMEPRAZOLE

REACTIONS (3)
  - Drug interaction [Unknown]
  - Haematoma [Recovered/Resolved]
  - Anaemia [Recovered/Resolved]

NARRATIVE: CASE EVENT DATE: 20140316
